FAERS Safety Report 24360538 (Version 4)
Quarter: 2024Q4

REPORT INFORMATION
  Report Type: Spontaneous
  Country: DE (occurrence: DE)
  Receive Date: 20240925
  Receipt Date: 20241201
  Transmission Date: 20250115
  Serious: Yes (Other)
  Sender: BRISTOL-MYERS SQUIBB COMPANY
  Company Number: DE-BRISTOL-MYERS SQUIBB COMPANY-2024-150923

PATIENT
  Age: 86 Year
  Sex: Male

DRUGS (9)
  1. ELIQUIS [Suspect]
     Active Substance: APIXABAN
     Indication: Atrial fibrillation
     Dates: start: 202401
  2. ELIQUIS [Suspect]
     Active Substance: APIXABAN
     Dates: start: 202406
  3. ELIQUIS [Suspect]
     Active Substance: APIXABAN
     Dates: start: 202408
  4. ASPIRIN [Suspect]
     Active Substance: ASPIRIN
     Indication: Product used for unknown indication
     Dates: start: 2024
  5. RAMIPRIL [Concomitant]
     Active Substance: RAMIPRIL
     Indication: Hypertension
  6. RAMIPRIL [Concomitant]
     Active Substance: RAMIPRIL
  7. NOVODIGAL (.BETA.-ACETYLDIGOXIN) [Concomitant]
     Active Substance: .BETA.-ACETYLDIGOXIN
     Indication: Product used for unknown indication
  8. NOVODIGAL (.BETA.-ACETYLDIGOXIN) [Concomitant]
     Active Substance: .BETA.-ACETYLDIGOXIN
  9. HEPARIN [Concomitant]
     Active Substance: HEPARIN SODIUM
     Indication: Product used for unknown indication

REACTIONS (9)
  - Renal impairment [Unknown]
  - Haematuria [Unknown]
  - Haemorrhage [Unknown]
  - Liver function test abnormal [Unknown]
  - Rash [Unknown]
  - Pruritus [Unknown]
  - Penile haemorrhage [Unknown]
  - Abdominal pain lower [Unknown]
  - Urinary retention [Unknown]

NARRATIVE: CASE EVENT DATE: 20240101
